FAERS Safety Report 7400588-2 (Version None)
Quarter: 2011Q2

REPORT INFORMATION
  Report Type: 
  Country: None (occurrence: None)
  Receive Date: 20110407
  Receipt Date: 20110331
  Transmission Date: 20111010
  Serious: Yes (Other)
  Sender: FDA-Public Use
  Company Number: DE-PFIZER INC-2011041227

PATIENT
  Age: 72 Year
  Sex: Female
  Weight: 60 kg

DRUGS (6)
  1. AGGRENOX [Concomitant]
     Dosage: UNK
  2. CHAMPIX [Suspect]
     Indication: SMOKING CESSATION THERAPY
     Dosage: 0.5 MG, 1X/DAY
     Route: 048
     Dates: start: 20110101, end: 20110101
  3. VALSARTAN [Concomitant]
     Indication: HYPERTENSION
     Dosage: 1 DF/DAY
  4. CHAMPIX [Suspect]
     Dosage: 1 MG, UNK
     Dates: start: 20110101, end: 20110224
  5. CHAMPIX [Suspect]
     Dosage: 0.5 MG, UNK
     Dates: start: 20110225, end: 20110327
  6. BELOC ZOK [Concomitant]
     Indication: HYPERTENSION
     Dosage: 1 DF/DAY

REACTIONS (8)
  - ROAD TRAFFIC ACCIDENT [None]
  - VISUAL IMPAIRMENT [None]
  - FATIGUE [None]
  - SLEEP DISORDER [None]
  - COORDINATION ABNORMAL [None]
  - NAUSEA [None]
  - TREMOR [None]
  - HEADACHE [None]
